FAERS Safety Report 6291982-4 (Version None)
Quarter: 2009Q3

REPORT INFORMATION
  Report Type: 
  Country: None (occurrence: None)
  Receive Date: 20090729
  Receipt Date: 20090720
  Transmission Date: 20100115
  Serious: Yes (Hospitalization)
  Sender: FDA-Public Use
  Company Number: GXKR2009US08264

PATIENT
  Age: 17 Year
  Sex: Female

DRUGS (1)
  1. LEVETIRACETAME (NGX) (LEVETIRACETAME) UNKNOWN [Suspect]
     Indication: CONVULSION
     Dosage: 250 MG, BID (10 MG/KG/DAY), ORAL
     Route: 048

REACTIONS (12)
  - ABDOMINAL PAIN [None]
  - DIARRHOEA [None]
  - FATIGUE [None]
  - FLANK PAIN [None]
  - HYDRONEPHROSIS [None]
  - PALLOR [None]
  - RENAL DISORDER [None]
  - RENAL FAILURE [None]
  - TUBULOINTERSTITIAL NEPHRITIS [None]
  - URETERAL STENT INSERTION [None]
  - URETERIC OBSTRUCTION [None]
  - VOMITING [None]
